FAERS Safety Report 4354365-X (Version None)
Quarter: 2004Q2

REPORT INFORMATION
  Report Type: 
  Country: None (occurrence: None)
  Receive Date: 20040503
  Receipt Date: 20040422
  Transmission Date: 20050107
  Serious: Yes (Death)
  Sender: FDA-Public Use
  Company Number: 2003AP03645

PATIENT
  Age: 93 Year
  Sex: Male

DRUGS (7)
  1. CASODEX [Suspect]
     Indication: PROSTATE CANCER
     Dosage: 80 MG DAILY PO
     Route: 048
     Dates: start: 20030811
  2. ZOLADEX [Suspect]
     Indication: PROSTATE CANCER
     Dosage: 10.8 MG Q3MO SQ
     Dates: start: 20030902
  3. MAGNESIUM OXIDE [Concomitant]
  4. MUCOSTA [Concomitant]
  5. PURSENNID [Concomitant]
  6. SELBEX [Concomitant]
  7. MERISLON [Concomitant]

REACTIONS (5)
  - HEPATIC FAILURE [None]
  - HYPOGLYCAEMIA [None]
  - LOSS OF CONSCIOUSNESS [None]
  - RESPIRATORY FAILURE [None]
  - VOMITING [None]
